FAERS Safety Report 21249043 (Version 1)
Quarter: 2022Q3

REPORT INFORMATION
  Report Type: Spontaneous
  Country: US (occurrence: US)
  Receive Date: 20220824
  Receipt Date: 20220824
  Transmission Date: 20221027
  Serious: No
  Sender: FDA-Public Use
  Company Number: US-BAYER-2022A117825

PATIENT
  Age: 81 Year
  Sex: Female

DRUGS (1)
  1. ESTRADIOL HEMIHYDRATE [Suspect]
     Active Substance: ESTRADIOL HEMIHYDRATE
     Dosage: 0.1 MG, OW
     Route: 062
     Dates: start: 2004

REACTIONS (2)
  - Product adhesion issue [None]
  - Expired product administered [None]

NARRATIVE: CASE EVENT DATE: 20220809
